FAERS Safety Report 19145906 (Version 4)
Quarter: 2021Q2

REPORT INFORMATION
  Report Type: Report from Study
  Country: DE (occurrence: DE)
  Receive Date: 20210416
  Receipt Date: 20210524
  Transmission Date: 20210717
  Serious: Yes (Hospitalization)
  Sender: FDA-Public Use
  Company Number: DE-ROCHE-2806142

PATIENT
  Age: 65 Year
  Sex: Female
  Weight: 120 kg

DRUGS (23)
  1. MESNA. [Concomitant]
     Active Substance: MESNA
     Route: 048
     Dates: start: 20210323, end: 20210323
  2. PEGFILGRASTIM [Concomitant]
     Active Substance: PEGFILGRASTIM
     Dosage: 6 BEATS/MIN
     Route: 058
     Dates: start: 20210310
  3. MESNA. [Concomitant]
     Active Substance: MESNA
     Route: 042
     Dates: start: 20210323, end: 20210323
  4. HYDROMORPHONE [Concomitant]
     Active Substance: HYDROMORPHONE
     Indication: PAIN
     Route: 065
     Dates: start: 20210401, end: 20210406
  5. ATEZOLIZUMAB. [Suspect]
     Active Substance: ATEZOLIZUMAB
     Indication: TRIPLE NEGATIVE BREAST CANCER
     Dosage: ON 08/DEC/2020, THE PATIENT RECEIVED MOST RECENT DOSE 840 MG PRIOR TO AE.?ON 23/MAR/2021, THE PATIEN
     Route: 041
     Dates: start: 20201208
  6. PALONOSETRON. [Concomitant]
     Active Substance: PALONOSETRON HYDROCHLORIDE
     Indication: PROPHYLAXIS
     Route: 048
     Dates: start: 20210309, end: 20210309
  7. LIPEGFILGRASTIM [Concomitant]
     Active Substance: LIPEGFILGRASTIM
     Dosage: 6 BEATS/MIN
     Route: 058
     Dates: start: 20210324
  8. L?THYROXIN [Concomitant]
     Active Substance: LEVOTHYROXINE SODIUM
     Indication: AUTOIMMUNE THYROIDITIS
     Route: 048
     Dates: start: 1990
  9. PANTOZOL [Concomitant]
     Active Substance: PANTOPRAZOLE SODIUM
     Indication: PROPHYLAXIS
     Route: 048
     Dates: start: 20210402, end: 20210406
  10. TIRAGOLUMAB. [Suspect]
     Active Substance: TIRAGOLUMAB
     Indication: TRIPLE NEGATIVE BREAST CANCER
     Dosage: ON 08/DEC/2020, THE PATIENT RECEIVED MOST RECENT DOSE 420 MG PRIOR TO AE.?ON 23/MAR/2021, THE PATIEN
     Route: 042
     Dates: start: 20201208
  11. DEXAMETHASONE. [Concomitant]
     Active Substance: DEXAMETHASONE
     Route: 042
     Dates: start: 20210323, end: 20210323
  12. MESNA. [Concomitant]
     Active Substance: MESNA
     Indication: PROPHYLAXIS
     Route: 042
     Dates: start: 20210309, end: 20210309
  13. NOVALGIN (METAMIZOLE SODIUM) [Concomitant]
     Active Substance: METAMIZOLE SODIUM
     Indication: BACK PAIN
     Route: 042
     Dates: start: 20201229, end: 20201229
  14. DEXAMETHASONE. [Concomitant]
     Active Substance: DEXAMETHASONE
     Indication: PROPHYLAXIS
     Route: 048
     Dates: start: 20210309, end: 20210309
  15. CYCLOPHOSPHAMIDE. [Suspect]
     Active Substance: CYCLOPHOSPHAMIDE
     Indication: TRIPLE NEGATIVE BREAST CANCER
     Dosage: ON 23/MAR/2021, THE PATIENT RECEIVED MOST RECENT DOSE 1300 MG PRIOR TO SAE.
     Route: 042
     Dates: start: 20210309
  16. NOVALGIN (METAMIZOLE SODIUM) [Concomitant]
     Active Substance: METAMIZOLE SODIUM
     Route: 042
     Dates: start: 20210119, end: 20210119
  17. NETUPITANT [Concomitant]
     Active Substance: NETUPITANT
     Dates: start: 20210323, end: 20210323
  18. MESNA. [Concomitant]
     Active Substance: MESNA
     Route: 048
     Dates: start: 20210309, end: 20210309
  19. PALONOSETRON. [Concomitant]
     Active Substance: PALONOSETRON HYDROCHLORIDE
     Dates: start: 20210323, end: 20210323
  20. LIPEGFILGRASTIM [Concomitant]
     Active Substance: LIPEGFILGRASTIM
     Dosage: 6 BEATS/MIN
     Route: 058
     Dates: start: 20210310
  21. NAB?PACLITAXEL [Suspect]
     Active Substance: PACLITAXEL
     Indication: TRIPLE NEGATIVE BREAST CANCER
     Dosage: ON15/DEC/2020, THE PATIENT RECEIVED MOST RECENT DOSE 272.5 MG PRIOR TO AE. ?ON 16/FEB/2021,THE PATIE
     Route: 042
     Dates: start: 20201208
  22. DOXORUBICIN [Suspect]
     Active Substance: DOXORUBICIN
     Indication: TRIPLE NEGATIVE BREAST CANCER
     Dosage: ON 23/MAR/2021, THE PATIENT RECEIVED MOST RECENT DOSE 131 MG PRIOR TO SAE.
     Route: 042
     Dates: start: 20210309
  23. NETUPITANT [Concomitant]
     Active Substance: NETUPITANT
     Indication: PROPHYLAXIS
     Route: 048
     Dates: start: 20210309, end: 20210309

REACTIONS (1)
  - Candida infection [Not Recovered/Not Resolved]

NARRATIVE: CASE EVENT DATE: 20201220
